FAERS Safety Report 7790047-X (Version None)
Quarter: 2011Q3

REPORT INFORMATION
  Report Type: 
  Country: None (occurrence: None)
  Receive Date: 20110930
  Receipt Date: 20101011
  Transmission Date: 20111222
  Serious: No
  Sender: FDA-Public Use
  Company Number: US-ASTRAZENECA-2010SE47947

PATIENT
  Age: 61 Year
  Sex: Female

DRUGS (6)
  1. SYNTHROID [Concomitant]
     Indication: HYPOTHYROIDISM
  2. CALCIUM CARBONATE [Concomitant]
  3. ARIMIDEX [Suspect]
     Indication: BREAST CANCER
     Route: 048
     Dates: start: 20010101, end: 20070101
  4. MULTI-VITAMIN [Concomitant]
  5. TETRACYCLINE [Concomitant]
     Indication: ROSACEA
  6. LEXAPRO [Concomitant]

REACTIONS (3)
  - HOT FLUSH [None]
  - DENTAL CARIES [None]
  - ARTHRALGIA [None]
